FAERS Safety Report 4451028-7 (Version None)
Quarter: 2004Q3

REPORT INFORMATION
  Report Type: 
  Country: None (occurrence: None)
  Receive Date: 20040916
  Receipt Date: 20040708
  Transmission Date: 20050211
  Serious: Yes (Other)
  Sender: FDA-Public Use
  Company Number: US-BRISTOL-MYERS SQUIBB COMPANY-12641171

PATIENT
  Age: 37 Year
  Sex: Male

DRUGS (10)
  1. STADOL [Suspect]
     Indication: TENSION HEADACHE
  2. STADOL [Suspect]
     Indication: MIGRAINE WITHOUT AURA
  3. HYDROCODONE [Suspect]
     Indication: TENSION HEADACHE
  4. HYDROCODONE [Suspect]
     Indication: MIGRAINE WITHOUT AURA
  5. SYNTHROID [Concomitant]
  6. ZOCOR [Concomitant]
  7. TEGRETOL [Concomitant]
  8. PAXIL [Concomitant]
  9. XANAX [Concomitant]
  10. FLEXERIL [Concomitant]
     Dosage: NUMBER OF DOSAGES:  3 TO 4 TIMES DAILY.

REACTIONS (4)
  - DEPENDENCE [None]
  - MYOCLONUS [None]
  - SEXUAL DYSFUNCTION [None]
  - TREMOR [None]
